FAERS Safety Report 23654877 (Version 1)
Quarter: 2024Q1

REPORT INFORMATION
  Report Type: Spontaneous
  Country: US (occurrence: None)
  Receive Date: 20240320
  Receipt Date: 20240320
  Transmission Date: 20240409
  Serious: No
  Sender: FDA-Public Use
  Company Number: None

PATIENT
  Age: 71 Year
  Sex: Female
  Weight: 90.72 kg

DRUGS (2)
  1. ODOMZO [Suspect]
     Active Substance: SONIDEGIB
     Indication: Basal cell carcinoma
     Dosage: TAKE 1 CAPSULE BY MOUTH  ON EPMTY STIOMACH AT LEASE 1 HOUR BEFORE OR TWO HOURS AFTER
     Route: 048
     Dates: start: 202311
  2. ODOMZO [Suspect]
     Active Substance: SONIDEGIB
     Indication: Skin cancer

REACTIONS (2)
  - Dehydration [None]
  - Ageusia [None]
